FAERS Safety Report 11214487 (Version 1)
Quarter: 2015Q2

REPORT INFORMATION
  Report Type: Spontaneous
  Country: FR (occurrence: FR)
  Receive Date: 20150624
  Receipt Date: 20150624
  Transmission Date: 20150821
  Serious: Yes (Hospitalization)
  Sender: FDA-Public Use
  Company Number: FR-ORION CORPORATION ORION PHARMA-TREX2015-0298

PATIENT
  Age: 78 Year
  Sex: Male

DRUGS (7)
  1. VERAPAMIL HYDROCHLORIDE. [Concomitant]
     Active Substance: VERAPAMIL HYDROCHLORIDE
     Route: 048
  2. ENBREL [Suspect]
     Active Substance: ETANERCEPT
     Indication: PSORIATIC ARTHROPATHY
     Dosage: STRENGTH: 50 MG
     Route: 042
     Dates: start: 201307
  3. PARACETAMOL [Concomitant]
     Active Substance: ACETAMINOPHEN
     Route: 048
  4. COUMADINE [Concomitant]
     Active Substance: WARFARIN SODIUM
     Route: 048
  5. RIFINAH [Concomitant]
     Active Substance: ISONIAZID\RIFAMPIN
     Dosage: STRENGTH: 300/150 MG
     Route: 048
     Dates: start: 20140915, end: 20141215
  6. METHOTREXATE (METHOTREXATE SODIUM) [Suspect]
     Active Substance: METHOTREXATE SODIUM
     Indication: PSORIATIC ARTHROPATHY
     Dosage: STRENGTH: 10 MG
     Route: 048
     Dates: start: 201307
  7. SPECIAFOLDINE [Concomitant]
     Active Substance: FOLIC ACID
     Dosage: STRENGTH: 5 MG
     Route: 048
     Dates: start: 201307

REACTIONS (2)
  - Hodgkin^s disease nodular sclerosis [Not Recovered/Not Resolved]
  - Epstein-Barr virus infection [Not Recovered/Not Resolved]

NARRATIVE: CASE EVENT DATE: 201411
